FAERS Safety Report 24546794 (Version 1)
Quarter: 2024Q4

REPORT INFORMATION
  Report Type: Spontaneous
  Country: US (occurrence: US)
  Receive Date: 20241024
  Receipt Date: 20241024
  Transmission Date: 20250114
  Serious: No
  Sender: BAUSCH AND LOMB
  Company Number: US-BAUSCHBL-2024BNL036058

PATIENT
  Sex: Female

DRUGS (1)
  1. MIEBO [Suspect]
     Active Substance: PERFLUOROHEXYLOCTANE
     Indication: Product used for unknown indication
     Dosage: ONE DROP OF MIEBO IN EACH EYE
     Route: 047
     Dates: start: 20241011

REACTIONS (1)
  - Headache [Unknown]

NARRATIVE: CASE EVENT DATE: 20241011
